FAERS Safety Report 9625718 (Version 1)
Quarter: 2013Q4

REPORT INFORMATION
  Report Type: Report from Study
  Country: GB (occurrence: GB)
  Receive Date: 20131016
  Receipt Date: 20131016
  Transmission Date: 20140711
  Serious: Yes (Hospitalization)
  Sender: FDA-Public Use
  Company Number: GB-ROCHE-1288828

PATIENT
  Sex: Female

DRUGS (4)
  1. RITUXIMAB [Suspect]
     Indication: RHEUMATOID ARTHRITIS
     Route: 065
     Dates: start: 20110526
  2. HYDROXYCHLOROQUINE [Concomitant]
  3. METHOTREXATE ORAL [Concomitant]
  4. SULPHASALAZINE [Concomitant]

REACTIONS (1)
  - Limb injury [Unknown]
